FAERS Safety Report 8837318 (Version 1)
Quarter: 2012Q4

REPORT INFORMATION
  Report Type: 
  Country: US (occurrence: US)
  Receive Date: 20121012
  Receipt Date: 20121012
  Transmission Date: 20130627
  Serious: No
  Sender: FDA-Public Use
  Company Number: US-TEVA-364327USA

PATIENT
  Age: 22 Year
  Sex: Female
  Weight: 61.29 kg

DRUGS (3)
  1. PLAN B ONE-STEP [Suspect]
     Indication: POST COITAL CONTRACEPTION
     Dosage: 1.5 Milligram Daily;
     Route: 048
     Dates: start: 20120905, end: 20120905
  2. FUROSEMIDE [Concomitant]
     Indication: PROTEIN URINE PRESENT
  3. FUROSEMIDE [Concomitant]
     Indication: DIURETIC THERAPY

REACTIONS (1)
  - Menstruation irregular [Recovered/Resolved]
